FAERS Safety Report 10148731 (Version 2)
Quarter: 2014Q2

REPORT INFORMATION
  Report Type: Spontaneous
  Country: FI (occurrence: FI)
  Receive Date: 20140502
  Receipt Date: 20140602
  Transmission Date: 20141212
  Serious: Yes (Other)
  Sender: FDA-Public Use
  Company Number: FI-AMGEN-FINSP2014030343

PATIENT
  Age: 62 Year
  Sex: Female

DRUGS (5)
  1. NEULASTA [Suspect]
     Indication: NEUTROPHIL COUNT DECREASED
     Dosage: UNK
     Route: 065
     Dates: start: 20140328, end: 20140328
  2. NEULASTA [Suspect]
     Indication: ENDOMETRIAL CANCER
  3. NIVESTIM [Suspect]
     Indication: PRODUCT USED FOR UNKNOWN INDICATION
     Dosage: UNK
     Route: 065
  4. PACLITAXEL [Concomitant]
     Dosage: UNK
  5. CARBOPLATIN [Concomitant]
     Dosage: UNK

REACTIONS (1)
  - Therapeutic response decreased [Recovered/Resolved]
